FAERS Safety Report 7815649-3 (Version None)
Quarter: 2011Q4

REPORT INFORMATION
  Report Type: 
  Country: None (occurrence: None)
  Receive Date: 20111014
  Receipt Date: 20111013
  Transmission Date: 20120403
  Serious: No
  Sender: FDA-Public Use
  Company Number: US-PFIZER INC-2011244417

PATIENT
  Sex: Female

DRUGS (1)
  1. LYRICA [Suspect]
     Dosage: 50+75 MG, 2X/DAY

REACTIONS (3)
  - MUSCLE TWITCHING [None]
  - TEARFULNESS [None]
  - MIDDLE INSOMNIA [None]
